FAERS Safety Report 12633283 (Version 1)
Quarter: 2016Q3

REPORT INFORMATION
  Report Type: Spontaneous
  Country: US (occurrence: None)
  Receive Date: 20160808
  Receipt Date: 20160808
  Transmission Date: 20161109
  Serious: Yes (Disabling)
  Sender: FDA-Public Use
  Company Number: None

PATIENT
  Age: 35 Year
  Sex: Female

DRUGS (15)
  1. CALCIUM LACTATE [Concomitant]
     Active Substance: CALCIUM LACTATE
  2. VNS [Concomitant]
  3. LEVETIRACETAM. [Concomitant]
     Active Substance: LEVETIRACETAM
  4. NEUROTROPHIN PMG [Concomitant]
  5. BLUE ICE FERMENTED COD LIVER OIL [Concomitant]
  6. CATAPLEX G [Concomitant]
  7. TRACE MINERALS-B12 [Concomitant]
  8. CLONAZEPAM. [Concomitant]
     Active Substance: CLONAZEPAM
  9. FOLIC ACID-B12 [Concomitant]
  10. LYRICA [Concomitant]
     Active Substance: PREGABALIN
  11. TOPIRAMATE. [Concomitant]
     Active Substance: TOPIRAMATE
  12. NEUROPLEX [Concomitant]
  13. CATAPLEX B [Concomitant]
  14. APTIOM [Suspect]
     Active Substance: ESLICARBAZEPINE ACETATE
     Indication: EPILEPSY
     Dosage: 1 TABLET(S) TWICE A DAY TAKEN BY MOUTH
     Route: 048
     Dates: start: 20151223
  15. PROLAMINE IODINE [Concomitant]

REACTIONS (4)
  - Nightmare [None]
  - Seizure [None]
  - Screaming [None]
  - Stress [None]

NARRATIVE: CASE EVENT DATE: 20160801
